FAERS Safety Report 15922966 (Version 2)
Quarter: 2019Q1

REPORT INFORMATION
  Report Type: Spontaneous
  Country: US (occurrence: US)
  Receive Date: 20190205
  Receipt Date: 20190219
  Transmission Date: 20190417
  Serious: No
  Sender: FDA-Public Use
  Company Number: US-ALLERGAN-1824824US

PATIENT
  Age: 79 Year
  Sex: Female

DRUGS (1)
  1. BOTOX [Suspect]
     Active Substance: ONABOTULINUMTOXINA
     Indication: HYPERTONIC BLADDER
     Dosage: UNK UNK, SINGLE
     Route: 030
     Dates: start: 20180109, end: 20180109

REACTIONS (5)
  - Insomnia [Recovered/Resolved]
  - Bladder pain [Recovered/Resolved]
  - Pelvic pain [Recovered/Resolved]
  - Fungal infection [Unknown]
  - Urinary retention [Unknown]

NARRATIVE: CASE EVENT DATE: 20180116
